FAERS Safety Report 24603088 (Version 1)
Quarter: 2024Q4

REPORT INFORMATION
  Report Type: Spontaneous
  Country: SE (occurrence: SE)
  Receive Date: 20241111
  Receipt Date: 20241111
  Transmission Date: 20250115
  Serious: Yes (Death, Other)
  Sender: ALEXION PHARMACEUTICALS
  Company Number: None

PATIENT
  Age: 68 Year
  Weight: 87 kg

DRUGS (2)
  1. IMFINZI [Suspect]
     Active Substance: DURVALUMAB
     Dosage: 1 TIME EVERY 3-4 WEEKS DOSE: FOURTH DOSE
  2. PREDNISOLONE [Concomitant]
     Active Substance: PREDNISOLONE
     Dosage: 7 TABLETS/DAY FOR 4 DAYS, THEN TAPER.

REACTIONS (5)
  - Thrombosis [Recovering/Resolving]
  - Myocarditis [Fatal]
  - Pneumonitis [Fatal]
  - Pancreatitis [Recovered/Resolved]
  - Pneumocystis jirovecii pneumonia [Fatal]
